FAERS Safety Report 21741692 (Version 9)
Quarter: 2024Q1

REPORT INFORMATION
  Report Type: Report from Study
  Country: CH (occurrence: CH)
  Receive Date: 20221216
  Receipt Date: 20240225
  Transmission Date: 20240409
  Serious: Yes (Hospitalization)
  Sender: FDA-Public Use
  Company Number: CH-ABBVIE-21K-151-4145921-00

PATIENT
  Age: 71 Year
  Sex: Female
  Weight: 56 kg

DRUGS (33)
  1. CARBIDOPA\LEVODOPA [Suspect]
     Active Substance: CARBIDOPA\LEVODOPA
     Indication: Parkinson^s disease
     Dosage: MD: 10 ML, CRD: 3.6 ML/H, ED: 1.5 ML
     Route: 050
     Dates: start: 20230727, end: 20231026
  2. CARBIDOPA\LEVODOPA [Suspect]
     Active Substance: CARBIDOPA\LEVODOPA
     Dosage: MD: 10 ML, CRD: 3.6 ML/H, ED: 1.5 ML
     Route: 050
     Dates: start: 20231026, end: 20231120
  3. CARBIDOPA\LEVODOPA [Suspect]
     Active Substance: CARBIDOPA\LEVODOPA
     Dosage: MD: 10.0 ML, CRD: 2.7 ML/H, CRN: 0 ML/H, ED: 1.0 ML
     Route: 050
     Dates: start: 20211104, end: 20211123
  4. CARBIDOPA\LEVODOPA [Suspect]
     Active Substance: CARBIDOPA\LEVODOPA
     Dosage: MD: 10 ML, CRD: 3.8 ML/H, ED: 1.5 ML
     Route: 050
     Dates: start: 20230721, end: 20230727
  5. CARBIDOPA\LEVODOPA [Suspect]
     Active Substance: CARBIDOPA\LEVODOPA
     Dosage: MD: 7 ML, CRD: 4.1 ML/H, ED: 2.0 ML, CRN: 2.7ML/H?FREQUENCY TEXT: 24H THERAPY
     Route: 050
     Dates: start: 20240131, end: 20240220
  6. CARBIDOPA\LEVODOPA [Suspect]
     Active Substance: CARBIDOPA\LEVODOPA
     Dosage: MD: 10.0 ML, CRD: 2.3 ML/H, CRN: 0 ML/H, ED: 1.0 ML
     Route: 050
     Dates: start: 20211022, end: 20211026
  7. CARBIDOPA\LEVODOPA [Suspect]
     Active Substance: CARBIDOPA\LEVODOPA
     Dosage: MD: 7.0 ML, CRD: 4.1 ML/H, AD: 4.5ML/H, ED: 2.0 ML, CRN: 2.7ML/H
     Route: 050
     Dates: start: 20240220
  8. CARBIDOPA\LEVODOPA [Suspect]
     Active Substance: CARBIDOPA\LEVODOPA
     Dosage: MD: 6.0 ML, CRD: 2.4 ML/H, CRN: 0 ML/H, ED: 1.0 ML, 16H THERAPY
     Route: 050
     Dates: start: 20211018, end: 20211021
  9. CARBIDOPA\LEVODOPA [Suspect]
     Active Substance: CARBIDOPA\LEVODOPA
     Dosage: MD: 10 ML, CRD: 3.6 ML/H, ED: 1.5 ML
     Route: 050
     Dates: start: 20230509, end: 20230523
  10. CARBIDOPA\LEVODOPA [Suspect]
     Active Substance: CARBIDOPA\LEVODOPA
     Dosage: MD: 10.0 ML, CRD: 2.1 ML/H, CRN: 0 ML/H, ED: 1.0 ML, 16H THERAPY
     Route: 050
     Dates: start: 20211021, end: 20211022
  11. CARBIDOPA\LEVODOPA [Suspect]
     Active Substance: CARBIDOPA\LEVODOPA
     Dosage: MD: 10 ML, CRD: 3.3 ML/H, ED: 1.5 ML
     Route: 050
     Dates: start: 20230317, end: 20230404
  12. CARBIDOPA\LEVODOPA [Suspect]
     Active Substance: CARBIDOPA\LEVODOPA
     Dosage: MD: 10.0 ML, CRD: 2.4 ML/H, CRN: 0 ML/H, ED: 1.0 ML, 16H THERAPY
     Route: 050
     Dates: start: 20211026, end: 20211101
  13. CARBIDOPA\LEVODOPA [Suspect]
     Active Substance: CARBIDOPA\LEVODOPA
     Dosage: MD: 10.0 ML, CRD: 3.4 ML/H, CRN: 0 ML/H, ED: 1.5 ML 16H THERAPY
     Route: 050
     Dates: start: 20220121, end: 20220826
  14. CARBIDOPA\LEVODOPA [Suspect]
     Active Substance: CARBIDOPA\LEVODOPA
     Dosage: MD: 10 ML, CRD: 3.3 ML/H, ED: 1.5 ML
     Route: 050
     Dates: start: 20230313, end: 20230317
  15. CARBIDOPA\LEVODOPA [Suspect]
     Active Substance: CARBIDOPA\LEVODOPA
     Dosage: MD: 10.0 ML, CRD: 2.9 ML/H, CRN: 0 ML/H, ED: 1.0 ML 16H THERAPY
     Route: 050
     Dates: start: 20211123, end: 20220117
  16. CARBIDOPA\LEVODOPA [Suspect]
     Active Substance: CARBIDOPA\LEVODOPA
     Dosage: MD: 10.0 ML, CRD: 3.2 ML/H, CRN: 0 ML/H, ED: 1.5 ML 16H THERAPY
     Route: 050
     Dates: start: 20220117, end: 20220121
  17. CARBIDOPA\LEVODOPA [Suspect]
     Active Substance: CARBIDOPA\LEVODOPA
     Dosage: MD: 10.0 ML, CRD: 3.5 ML/H, CRN: 0 ML/H, ED: 1.5 ML 16H THERAPY
     Route: 050
     Dates: start: 20220913, end: 20220916
  18. CARBIDOPA\LEVODOPA [Suspect]
     Active Substance: CARBIDOPA\LEVODOPA
     Dosage: MD: 10.0 ML, CRD: 3.0 ML/H, CRN: 0 ML/H, ED: 1.5 ML 16H THERAPY
     Route: 050
     Dates: start: 20221025, end: 20221104
  19. CARBIDOPA\LEVODOPA [Suspect]
     Active Substance: CARBIDOPA\LEVODOPA
     Dosage: MD: 10.0 ML, CRD: 3.2 ML/H, CRN: 0 ML/H, ED: 1.5 ML 16H THERAPY
     Route: 050
     Dates: start: 20220916, end: 20221021
  20. CARBIDOPA\LEVODOPA [Suspect]
     Active Substance: CARBIDOPA\LEVODOPA
     Dosage: MD: 10.0 ML, CRD: 3.3 ML/H, CRN: 0 ML/H, ED: 1.5 ML 16H THERAPY
     Route: 050
     Dates: start: 20220826, end: 20220913
  21. CARBIDOPA\LEVODOPA [Suspect]
     Active Substance: CARBIDOPA\LEVODOPA
     Dosage: MD: 10.0 ML, CRD: 3.1 ML/H, CRN: 0 ML/H, ED: 1.5 ML 16H THERAPY
     Route: 050
     Dates: start: 20221021, end: 20221025
  22. CARBIDOPA\LEVODOPA [Suspect]
     Active Substance: CARBIDOPA\LEVODOPA
     Dosage: MD: 10 ML, CRD: 3.2 ML/H, ED: 1.5 ML, 16 HOUR THERAPY
     Route: 050
     Dates: start: 20221206, end: 20230313
  23. CARBIDOPA\LEVODOPA [Suspect]
     Active Substance: CARBIDOPA\LEVODOPA
     Dosage: MD: 10.0 ML, CRD: 3.1 ML/H, CRN: 0 ML/H, ED: 1.5 ML
     Route: 050
     Dates: start: 20221104, end: 20221206
  24. CARBIDOPA\LEVODOPA [Suspect]
     Active Substance: CARBIDOPA\LEVODOPA
     Dosage: MD: 10 ML, CRD: 3.4 ML/H, ED: 1.5 ML
     Route: 050
     Dates: start: 20230404, end: 20230411
  25. CARBIDOPA\LEVODOPA [Suspect]
     Active Substance: CARBIDOPA\LEVODOPA
     Dosage: MD: 10 ML, CRD: 3.4 ML/H, ED: 1.5 ML
     Route: 050
     Dates: start: 20230411, end: 20230509
  26. CARBIDOPA\LEVODOPA [Suspect]
     Active Substance: CARBIDOPA\LEVODOPA
     Dosage: MD: 10 ML, CRD: 3.6 ML/H, ED: 2.0 ML
     Route: 050
     Dates: start: 20231120, end: 20231207
  27. CARBIDOPA\LEVODOPA [Suspect]
     Active Substance: CARBIDOPA\LEVODOPA
     Dosage: MD: 10 ML, CRD: 3.6 ML/H, ED: 1.5 ML
     Route: 050
     Dates: start: 20230523, end: 20230721
  28. CARBIDOPA\LEVODOPA [Suspect]
     Active Substance: CARBIDOPA\LEVODOPA
     Dosage: MD: 10 ML, CRD: 3.7 ML/H, ED: 2.0 ML?STOP DATE : 2023
     Route: 050
     Dates: start: 20231207, end: 20240131
  29. CARBIDOPA\LEVODOPA [Suspect]
     Active Substance: CARBIDOPA\LEVODOPA
     Dosage: MD: 11 ML, CRD: 3.4 ML/H, ED: 1.5 ML
     Route: 050
  30. CARBIDOPA\LEVODOPA [Suspect]
     Active Substance: CARBIDOPA\LEVODOPA
     Dosage: MD: 10.0 ML, CRD: 2.5 ML/H, CRN: 0 ML/H, ED: 1.0 ML
     Route: 050
     Dates: start: 20211101, end: 20211104
  31. PK-MERZ [Concomitant]
     Active Substance: AMANTADINE
     Indication: Product used for unknown indication
     Dates: start: 20230427
  32. PRAMIPEXOLE [Concomitant]
     Active Substance: PRAMIPEXOLE\PRAMIPEXOLE DIHYDROCHLORIDE
     Indication: Parkinson^s disease
     Dates: end: 20211217
  33. PRAMIPEXOLE [Concomitant]
     Active Substance: PRAMIPEXOLE\PRAMIPEXOLE DIHYDROCHLORIDE
     Indication: Parkinson^s disease
     Dates: start: 20211217

REACTIONS (24)
  - Fall [Recovered/Resolved]
  - Mobility decreased [Not Recovered/Not Resolved]
  - Device placement issue [Recovered/Resolved]
  - Erythema [Recovered/Resolved]
  - Dyskinesia [Recovered/Resolved]
  - Freezing phenomenon [Not Recovered/Not Resolved]
  - Freezing phenomenon [Recovered/Resolved]
  - Rib fracture [Recovering/Resolving]
  - Stoma site discharge [Unknown]
  - Akinesia [Not Recovered/Not Resolved]
  - Balance disorder [Recovered/Resolved]
  - Pain in extremity [Recovering/Resolving]
  - Parkinson^s disease [Recovering/Resolving]
  - Device leakage [Recovered/Resolved]
  - Drug ineffective [Recovered/Resolved]
  - Ligament rupture [Recovering/Resolving]
  - Therapeutic product effect incomplete [Unknown]
  - On and off phenomenon [Recovering/Resolving]
  - Balance disorder [Not Recovered/Not Resolved]
  - Musculoskeletal chest pain [Recovering/Resolving]
  - Stoma complication [Unknown]
  - Gait disturbance [Recovered/Resolved]
  - Gait disturbance [Not Recovered/Not Resolved]
  - Inflammation [Recovering/Resolving]

NARRATIVE: CASE EVENT DATE: 20211001
